FAERS Safety Report 21890356 (Version 5)
Quarter: 2024Q1

REPORT INFORMATION
  Report Type: Spontaneous
  Country: US (occurrence: US)
  Receive Date: 20230120
  Receipt Date: 20240108
  Transmission Date: 20240410
  Serious: Yes (Death, Other)
  Sender: FDA-Public Use
  Company Number: US-PFIZER INC-202300028594

PATIENT
  Age: 90 Year
  Sex: Male
  Weight: 45.36 kg

DRUGS (1)
  1. VYNDAMAX [Suspect]
     Active Substance: TAFAMIDIS
     Dosage: 61 MG

REACTIONS (5)
  - Dementia Alzheimer^s type [Fatal]
  - Cardiac failure congestive [Fatal]
  - Dementia [Unknown]
  - Cardiac amyloidosis [Unknown]
  - Cardiac disorder [Unknown]
